FAERS Safety Report 25022273 (Version 5)
Quarter: 2025Q3

REPORT INFORMATION
  Report Type: Spontaneous
  Country: JP (occurrence: JP)
  Receive Date: 20250228
  Receipt Date: 20250916
  Transmission Date: 20251021
  Serious: Yes (Hospitalization, Other)
  Sender: ALEXION PHARMACEUTICALS
  Company Number: JP-ASTRAZENECA-250002527_032420_P_1

PATIENT
  Age: 54 Year
  Sex: Female
  Weight: 52 kg

DRUGS (8)
  1. TEZSPIRE [Suspect]
     Active Substance: TEZEPELUMAB-EKKO
     Dosage: 210 MILLIGRAM, Q4W
  2. TEZSPIRE [Suspect]
     Active Substance: TEZEPELUMAB-EKKO
     Indication: Asthma
     Dosage: 210 MILLIGRAM, Q4W
     Dates: start: 20250108, end: 20250108
  3. GLYCOPYRROLATE\INDACATEROL\MOMETASONE FUROATE [Concomitant]
     Active Substance: GLYCOPYRROLATE\INDACATEROL\MOMETASONE FUROATE
     Route: 065
  4. ALVESCO [Concomitant]
     Active Substance: CICLESONIDE
     Route: 065
  5. MONTELUKAST [Concomitant]
     Active Substance: MONTELUKAST
     Route: 065
  6. LORATADINE [Concomitant]
     Active Substance: LORATADINE
     Route: 065
  7. RABEPRAZOLE SODIUM [Concomitant]
     Active Substance: RABEPRAZOLE SODIUM
     Route: 065
  8. ELDECALCITOL [Concomitant]
     Active Substance: ELDECALCITOL
     Route: 065

REACTIONS (5)
  - Anaphylactic reaction [Unknown]
  - Dysphonia [Unknown]
  - Musculoskeletal discomfort [Unknown]
  - Erythema [Unknown]
  - Wheezing [Unknown]

NARRATIVE: CASE EVENT DATE: 20250108
